FAERS Safety Report 7208853-9 (Version None)
Quarter: 2011Q1

REPORT INFORMATION
  Report Type: 
  Country: None (occurrence: None)
  Receive Date: 20110104
  Receipt Date: 20101221
  Transmission Date: 20110831
  Serious: No
  Sender: FDA-Public Use
  Company Number: US-PFIZER INC-2010103956

PATIENT
  Sex: Female

DRUGS (2)
  1. XANAX [Suspect]
     Indication: PANIC DISORDER
     Dosage: UNK
  2. ALPRAZOLAM [Suspect]
     Indication: PANIC DISORDER
     Dosage: UNK

REACTIONS (7)
  - HEADACHE [None]
  - TREMOR [None]
  - FEELING JITTERY [None]
  - ABDOMINAL DISCOMFORT [None]
  - DRUG INEFFECTIVE [None]
  - INSOMNIA [None]
  - PANIC REACTION [None]
